FAERS Safety Report 10025547 (Version 1)
Quarter: 2014Q1

REPORT INFORMATION
  Report Type: Report from Study
  Country: ES (occurrence: ES)
  Receive Date: 20140320
  Receipt Date: 20140320
  Transmission Date: 20141002
  Serious: Yes (Hospitalization)
  Sender: FDA-Public Use
  Company Number: ES-PFIZER INC-2014078552

PATIENT
  Age: 34 Year
  Sex: Female

DRUGS (2)
  1. TRANKIMAZIN [Suspect]
     Indication: SUICIDE ATTEMPT
     Dosage: 70 MG, SINGLE
     Route: 048
     Dates: start: 20131203, end: 20131204
  2. TRANKIMAZIN [Suspect]
     Indication: ANXIETY

REACTIONS (3)
  - Intentional overdose [Recovered/Resolved]
  - Suicide attempt [Unknown]
  - Somnolence [Unknown]
